FAERS Safety Report 20642549 (Version 2)
Quarter: 2022Q2

REPORT INFORMATION
  Report Type: Spontaneous
  Country: US (occurrence: US)
  Receive Date: 20220328
  Receipt Date: 20220422
  Transmission Date: 20220721
  Serious: Yes (Other)
  Sender: FDA-Public Use
  Company Number: US-BAYER-2022A044327

PATIENT
  Age: 17 Year
  Sex: Female
  Weight: 49.5 kg

DRUGS (10)
  1. MIRENA [Suspect]
     Active Substance: LEVONORGESTREL
     Indication: Contraception
     Dosage: 20?G/DAY
     Route: 015
     Dates: start: 20210709, end: 20220329
  2. MIRENA [Suspect]
     Active Substance: LEVONORGESTREL
     Indication: Heavy menstrual bleeding
  3. HIBICLENS [Concomitant]
     Active Substance: CHLORHEXIDINE GLUCONATE
     Dosage: UNK
     Dates: start: 20210709
  4. IBUPROFEN [Concomitant]
     Active Substance: IBUPROFEN
     Indication: Headache
     Dosage: 400 MG
     Dates: start: 20210419, end: 20220323
  5. IBUPROFEN [Concomitant]
     Active Substance: IBUPROFEN
     Indication: Pain
  6. MAGNESIUM [Concomitant]
     Active Substance: MAGNESIUM
     Dosage: 500 MG
     Route: 048
     Dates: start: 20210419
  7. METOCLOPRAMIDE [Concomitant]
     Active Substance: METOCLOPRAMIDE
     Indication: Nausea
     Dosage: UNK
     Dates: start: 20210419, end: 20211011
  8. METOCLOPRAMIDE [Concomitant]
     Active Substance: METOCLOPRAMIDE
     Indication: Headache
  9. MULTIVITAL ENERGY [Concomitant]
  10. RIBOFLAVIN [Concomitant]
     Active Substance: RIBOFLAVIN
     Dosage: 400 MG, QD
     Route: 048
     Dates: start: 20210419

REACTIONS (9)
  - Genital haemorrhage [Recovered/Resolved]
  - Device dislocation [Recovered/Resolved]
  - Pelvic pain [None]
  - Intermenstrual bleeding [None]
  - Amenorrhoea [None]
  - Migraine [Not Recovered/Not Resolved]
  - Skin discolouration [None]
  - Nausea [None]
  - Abdominal pain lower [None]

NARRATIVE: CASE EVENT DATE: 20211001
